FAERS Safety Report 5470689-7 (Version None)
Quarter: 2007Q3

REPORT INFORMATION
  Report Type: 
  Country: None (occurrence: None)
  Receive Date: 20070928
  Receipt Date: 20070917
  Transmission Date: 20080115
  Serious: Yes (Other)
  Sender: FDA-Public Use
  Company Number: US-AMGEN-US243671

PATIENT
  Age: 19 Year
  Sex: Female

DRUGS (10)
  1. ARANESP [Suspect]
     Indication: DIALYSIS
  2. PREDNISONE [Concomitant]
  3. MYCOPHENOLATE MOFETIL [Concomitant]
  4. CYCLOSPORINE [Concomitant]
  5. VALGANCICLOVIR HCL [Concomitant]
  6. BACTRIM [Concomitant]
  7. PRAVASTATIN [Concomitant]
  8. CLOTRIMAZOLE [Concomitant]
  9. OMEPRAZOLE [Concomitant]
  10. LISINOPRIL [Concomitant]

REACTIONS (1)
  - NEPHROGENIC SYSTEMIC FIBROSIS [None]
